FAERS Safety Report 13386123 (Version 1)
Quarter: 2017Q1

REPORT INFORMATION
  Report Type: Spontaneous
  Country: US (occurrence: US)
  Receive Date: 20170330
  Receipt Date: 20170330
  Transmission Date: 20170429
  Serious: No
  Sender: FDA-Public Use
  Company Number: US-TEVA-749560ACC

PATIENT
  Age: 31 Year
  Sex: Female

DRUGS (9)
  1. FLEXERIL [Concomitant]
     Active Substance: CYCLOBENZAPRINE HYDROCHLORIDE
  2. DULOXETINE. [Concomitant]
     Active Substance: DULOXETINE
  3. XANAX [Concomitant]
     Active Substance: ALPRAZOLAM
  4. LEXAPRO [Concomitant]
     Active Substance: ESCITALOPRAM OXALATE
  5. NORGEST/ETHI [Concomitant]
  6. VICODIN [Concomitant]
     Active Substance: ACETAMINOPHEN\HYDROCODONE BITARTRATE
  7. NAPROXEN. [Concomitant]
     Active Substance: NAPROXEN
  8. COPAXONE [Suspect]
     Active Substance: GLATIRAMER ACETATE
     Indication: MULTIPLE SCLEROSIS
     Route: 058
  9. TRAMADOL. [Concomitant]
     Active Substance: TRAMADOL

REACTIONS (2)
  - Pain [Unknown]
  - Chills [Unknown]

NARRATIVE: CASE EVENT DATE: 20170224
